FAERS Safety Report 18843364 (Version 1)
Quarter: 2021Q1

REPORT INFORMATION
  Report Type: Spontaneous
  Country: US (occurrence: US)
  Receive Date: 20210203
  Receipt Date: 20210203
  Transmission Date: 20210419
  Serious: Yes (Hospitalization)
  Sender: FDA-Public Use
  Company Number: None

PATIENT
  Sex: Female

DRUGS (15)
  1. CHLORHEX GLU [Concomitant]
     Active Substance: CHLORHEXIDINE GLUCONATE
  2. TRAMADOL HCL [Concomitant]
     Active Substance: TRAMADOL HYDROCHLORIDE
  3. COSENTYX [Suspect]
     Active Substance: SECUKINUMAB
     Indication: PSORIASIS
     Route: 058
     Dates: start: 20200922
  4. AZLTHROMYCIN [Concomitant]
  5. METHYLPRED [Concomitant]
     Active Substance: METHYLPREDNISOLONE
  6. AMLODIPINE [Concomitant]
     Active Substance: AMLODIPINE BESYLATE
  7. AMOXICILLIN. [Concomitant]
     Active Substance: AMOXICILLIN
  8. CLOBETASOL [Concomitant]
     Active Substance: CLOBETASOL
  9. ONDANSETRON [Concomitant]
     Active Substance: ONDANSETRON
  10. XARELTO [Concomitant]
     Active Substance: RIVAROXABAN
  11. APAP/CODEINE [Concomitant]
     Active Substance: ACETAMINOPHEN\CODEINE PHOSPHATE
  12. BENZONATATE. [Concomitant]
     Active Substance: BENZONATATE
  13. LOSARTAN POT [Concomitant]
     Active Substance: LOSARTAN POTASSIUM
  14. NORETHIN ACE [Concomitant]
  15. SYMBICORT [Concomitant]
     Active Substance: BUDESONIDE\FORMOTEROL FUMARATE DIHYDRATE

REACTIONS (2)
  - Transfusion [None]
  - Endometrial ablation [None]
